FAERS Safety Report 6757975-5 (Version None)
Quarter: 2010Q2

REPORT INFORMATION
  Report Type: 
  Country: None (occurrence: None)
  Receive Date: 20100604
  Receipt Date: 20100604
  Transmission Date: 20101027
  Serious: Yes (Life-Threatening, Hospitalization)
  Sender: FDA-Public Use
  Company Number: None

PATIENT
  Age: 17 Year
  Sex: Female
  Weight: 63.5036 kg

DRUGS (1)
  1. EPIPEN [Suspect]
     Indication: HYPERSENSITIVITY
     Dosage: 1 VIAL AS NEEDED IM
     Route: 030
     Dates: start: 20100601, end: 20100601

REACTIONS (2)
  - INCORRECT DOSE ADMINISTERED BY DEVICE [None]
  - PRODUCT QUALITY ISSUE [None]
